FAERS Safety Report 7640782-9 (Version None)
Quarter: 2011Q3

REPORT INFORMATION
  Report Type: 
  Country: None (occurrence: None)
  Receive Date: 20110728
  Receipt Date: 20110714
  Transmission Date: 20111222
  Serious: Yes (Hospitalization)
  Sender: FDA-Public Use
  Company Number: SE-ELI_LILLY_AND_COMPANY-SE201107005727

PATIENT
  Sex: Female

DRUGS (7)
  1. ZYPREXA [Suspect]
     Indication: SCHIZOPHRENIA
     Dosage: 20 MG, QD
     Route: 048
  2. CALCI CHEW D3 [Concomitant]
     Dosage: 500 MG, UNK
  3. LERGIGAN [Concomitant]
     Dosage: 50 MG, QD
     Route: 048
  4. FOLIC ACID [Concomitant]
     Dosage: 5 MG, UNK
  5. BEHEPAN [Concomitant]
     Dosage: 1 MG, UNK
  6. OXASCAND [Concomitant]
  7. SERTRALINE HYDROCHLORIDE [Concomitant]
     Dosage: 50 MG, UNK
     Route: 048

REACTIONS (4)
  - MATERNAL EXPOSURE DURING PREGNANCY [None]
  - WEIGHT INCREASED [None]
  - NEPHROGENIC DIABETES INSIPIDUS [None]
  - GALLBLADDER DISORDER [None]
